FAERS Safety Report 9096752 (Version 1)
Quarter: 2013Q1

REPORT INFORMATION
  Report Type: Spontaneous
  Country: GB (occurrence: None)
  Receive Date: 20130124
  Receipt Date: 20130124
  Transmission Date: 20140127
  Serious: Yes (Other)
  Sender: FDA-Public Use
  Company Number: AUR-APL-2013-00908

PATIENT
  Age: 22 Year
  Sex: Male

DRUGS (2)
  1. FLUOXETINE [Suspect]
     Indication: PRODUCT USED FOR UNKNOWN INDICATION
     Route: 048
     Dates: start: 20120825
  2. ABILIFY (ARIPIPRAZOLE) [Suspect]
     Indication: PRODUCT USED FOR UNKNOWN INDICATION
     Route: 048
     Dates: start: 20120825, end: 20121219

REACTIONS (7)
  - Euphoric mood [None]
  - Insomnia [None]
  - Depression [None]
  - Agitation [None]
  - Somnolence [None]
  - Anxiety [None]
  - Drug ineffective [None]
